FAERS Safety Report 11717855 (Version 1)
Quarter: 2015Q4

REPORT INFORMATION
  Report Type: Report from Study
  Country: US (occurrence: US)
  Receive Date: 20151110
  Receipt Date: 20151110
  Transmission Date: 20160304
  Serious: No
  Sender: FDA-Public Use
  Company Number: US-AMGEN-USASL2015116669

PATIENT
  Sex: Male

DRUGS (2)
  1. ENBREL [Suspect]
     Active Substance: ETANERCEPT
     Indication: PSORIASIS
     Dosage: 50 MG, 2 TIMES/WK
     Route: 065
  2. ENBREL [Suspect]
     Active Substance: ETANERCEPT
     Indication: PSORIATIC ARTHROPATHY

REACTIONS (8)
  - Lymphocyte count decreased [Unknown]
  - Blood uric acid increased [Unknown]
  - Haematocrit increased [Unknown]
  - Monocyte count increased [Unknown]
  - Anion gap decreased [Unknown]
  - Laboratory test abnormal [Unknown]
  - Neutrophil count decreased [Unknown]
  - Haemoglobin increased [Unknown]
